FAERS Safety Report 6307900-6 (Version None)
Quarter: 2009Q3

REPORT INFORMATION
  Report Type: 
  Country: None (occurrence: None)
  Receive Date: 20090812
  Receipt Date: 20090812
  Transmission Date: 20100115
  Serious: Yes (Other)
  Sender: FDA-Public Use
  Company Number: None

PATIENT
  Age: 30 Year
  Sex: Female
  Weight: 77.1115 kg

DRUGS (1)
  1. MIRENA [Suspect]
     Indication: CONTRACEPTION
     Dosage: 11 MONTHS, STILL USING

REACTIONS (9)
  - ACNE CYSTIC [None]
  - AFFECTIVE DISORDER [None]
  - ALOPECIA [None]
  - BACTERIAL INFECTION [None]
  - DYSPAREUNIA [None]
  - LIBIDO DECREASED [None]
  - MEMORY IMPAIRMENT [None]
  - MUSCLE SPASMS [None]
  - VAGINAL INFECTION [None]
